FAERS Safety Report 6525963-X (Version None)
Quarter: 2010Q1

REPORT INFORMATION
  Report Type: 
  Country: None (occurrence: None)
  Receive Date: 20100104
  Receipt Date: 20091222
  Transmission Date: 20100710
  Serious: Yes (Hospitalization, Other)
  Sender: FDA-Public Use
  Company Number: PHHY2009FR58134

PATIENT
  Age: 68 Year
  Sex: Male

DRUGS (4)
  1. BASILIXIMAB [Suspect]
     Indication: RENAL TRANSPLANT
  2. TACROLIMUS [Suspect]
     Indication: RENAL TRANSPLANT
  3. MYCOPHENOLATE MOFETIL [Suspect]
     Indication: RENAL TRANSPLANT
  4. CORTICOSTEROIDS [Suspect]
     Indication: RENAL TRANSPLANT

REACTIONS (10)
  - ENTEROCOCCAL INFECTION [None]
  - GRAFT COMPLICATION [None]
  - KIDNEY TRANSPLANT REJECTION [None]
  - NEPHRECTOMY [None]
  - NEPHROSTOMY [None]
  - PYREXIA [None]
  - RENAL FAILURE ACUTE [None]
  - URETERAL DISORDER [None]
  - URINARY TRACT INFECTION ENTEROCOCCAL [None]
  - URINOMA [None]
